FAERS Safety Report 18672868 (Version 1)
Quarter: 2020Q4

REPORT INFORMATION
  Report Type: Spontaneous
  Country: CN (occurrence: CN)
  Receive Date: 20201229
  Receipt Date: 20201229
  Transmission Date: 20210114
  Serious: Yes (Other)
  Sender: FDA-Public Use
  Company Number: CN-ROCHE-2738926

PATIENT
  Age: 75 Year
  Sex: Female

DRUGS (2)
  1. TARCEVA [Suspect]
     Active Substance: ERLOTINIB HYDROCHLORIDE
     Indication: LUNG ADENOCARCINOMA STAGE IV
     Dosage: 26/AUG/2020, 16/SEP/2020, 07/OCT/2020, 27/OCT/2020, 17/NOV/2020 AND 10/DEC/2020
     Route: 048
  2. AVASTIN [Suspect]
     Active Substance: BEVACIZUMAB
     Indication: LUNG ADENOCARCINOMA STAGE IV
     Dosage: 26/AUG/2020, 16/SEP/2020, 07/OCT/2020, 27/OCT/2020, 17/NOV/2020 AND 10/DEC/2020
     Route: 065

REACTIONS (1)
  - Haematochezia [Unknown]
